FAERS Safety Report 5690293-5 (Version None)
Quarter: 2008Q2

REPORT INFORMATION
  Report Type: 
  Country: None (occurrence: None)
  Receive Date: 20080401
  Receipt Date: 20080325
  Transmission Date: 20081010
  Serious: Yes (Other)
  Sender: FDA-Public Use
  Company Number: BR-JNJFOC-20080306336

PATIENT
  Age: 59 Year
  Sex: Female

DRUGS (2)
  1. REMICADE [Suspect]
     Route: 042
  2. REMICADE [Suspect]
     Indication: RHEUMATOID ARTHRITIS
     Dosage: 4 INFUSIONS ON UNSPECIFIED DATES
     Route: 042

REACTIONS (6)
  - CHILLS [None]
  - COUGH [None]
  - DYSPNOEA [None]
  - ERYTHEMA [None]
  - HYPERTHERMIA [None]
  - INFUSION RELATED REACTION [None]
